FAERS Safety Report 12570521 (Version 1)
Quarter: 2016Q3

REPORT INFORMATION
  Report Type: Spontaneous
  Country: US (occurrence: US)
  Receive Date: 20160719
  Receipt Date: 20160719
  Transmission Date: 20161109
  Serious: No
  Sender: FDA-Public Use
  Company Number: US-SHIRE-US201607848

PATIENT
  Age: 24 Year
  Sex: Male

DRUGS (1)
  1. VYVANSE [Suspect]
     Active Substance: LISDEXAMFETAMINE DIMESYLATE
     Indication: DRUG DIVERSION
     Dosage: UNK, UNKNOWN
     Route: 065

REACTIONS (1)
  - Drug diversion [Unknown]

NARRATIVE: CASE EVENT DATE: 2015
